FAERS Safety Report 9170274 (Version 1)
Quarter: 2013Q1

REPORT INFORMATION
  Report Type: Spontaneous
  Country: US (occurrence: US)
  Receive Date: 20130319
  Receipt Date: 20130319
  Transmission Date: 20140127
  Serious: Yes (Death, Other)
  Sender: FDA-Public Use
  Company Number: US-CELGENEUS-163-21660-13031950

PATIENT
  Sex: 0

DRUGS (2)
  1. ABRAXANE [Suspect]
     Indication: OVARIAN CANCER
     Dosage: 100 MILLIGRAM/SQ. METER
     Route: 041
  2. CARBOPLATIN [Suspect]
     Indication: OVARIAN CANCER
     Dosage: AUC 5
     Route: 041

REACTIONS (7)
  - Death [Fatal]
  - Fatigue [Unknown]
  - Neutropenia [Unknown]
  - Anaemia [Unknown]
  - Thrombocytopenia [Unknown]
  - Nausea [Unknown]
  - Disease progression [Unknown]
